FAERS Safety Report 4300120-6 (Version None)
Quarter: 2004Q1

REPORT INFORMATION
  Report Type: 
  Country: None (occurrence: None)
  Receive Date: 20040218
  Receipt Date: 20040211
  Transmission Date: 20041129
  Serious: Yes (Hospitalization)
  Sender: FDA-Public Use
  Company Number: PROG00204000269

PATIENT
  Sex: Female

DRUGS (2)
  1. PROGESTERONE [Suspect]
     Indication: MENOPAUSE
     Dosage: 100 MG QD PO
     Route: 048
     Dates: start: 20020101
  2. ESTRACE [Concomitant]

REACTIONS (2)
  - ENDOMETRIAL CANCER STAGE I [None]
  - SMEAR SITE UNSPECIFIED ABNORMAL [None]
